FAERS Safety Report 9497807 (Version 1)
Quarter: 2013Q3

REPORT INFORMATION
  Report Type: Spontaneous
  Country: GB (occurrence: None)
  Receive Date: 20130830
  Receipt Date: 20130830
  Transmission Date: 20140515
  Serious: Yes (Other)
  Sender: FDA-Public Use
  Company Number: GER/UKI/13/0034248

PATIENT
  Age: 35 Year
  Sex: Male

DRUGS (1)
  1. FEXOFENADINE [Suspect]
     Indication: PRODUCT USED FOR UNKNOWN INDICATION
     Route: 048
     Dates: start: 201306

REACTIONS (5)
  - Rash [None]
  - Pruritus [None]
  - Asthma [None]
  - Disease recurrence [None]
  - Therapeutic response decreased [None]
